FAERS Safety Report 12460306 (Version 1)
Quarter: 2016Q2

REPORT INFORMATION
  Report Type: Report from Study
  Country: CA (occurrence: CA)
  Receive Date: 20160613
  Receipt Date: 20160613
  Transmission Date: 20160815
  Serious: Yes (Other)
  Sender: FDA-Public Use
  Company Number: CA-JNJFOC-20160604869

PATIENT
  Sex: Female
  Weight: 55.79 kg

DRUGS (2)
  1. SIMPONI [Suspect]
     Active Substance: GOLIMUMAB
     Indication: COLITIS ULCERATIVE
     Route: 058
     Dates: start: 20160512
  2. SIMPONI [Suspect]
     Active Substance: GOLIMUMAB
     Indication: COLITIS ULCERATIVE
     Route: 058
     Dates: start: 20160524

REACTIONS (5)
  - Inadequate diet [Unknown]
  - Diarrhoea [Unknown]
  - Haemorrhage [Unknown]
  - Weight decreased [Unknown]
  - Rectal tenesmus [Unknown]

NARRATIVE: CASE EVENT DATE: 2016
